FAERS Safety Report 9322191 (Version 2)
Quarter: 2013Q2

REPORT INFORMATION
  Report Type: Report from Study
  Country: US (occurrence: US)
  Receive Date: 20130531
  Receipt Date: 20130610
  Transmission Date: 20140414
  Serious: Yes (Hospitalization, Other)
  Sender: FDA-Public Use
  Company Number: US-ABBOTT-13P-163-1096242-00

PATIENT
  Age: 49 Year
  Sex: Female

DRUGS (1)
  1. HUMIRA [Suspect]
     Indication: ANKYLOSING SPONDYLITIS
     Dates: start: 20100922, end: 201304

REACTIONS (12)
  - Convulsion [Not Recovered/Not Resolved]
  - Vitamin D deficiency [Unknown]
  - Vitamin K deficiency [Unknown]
  - Convulsion [Recovered/Resolved]
  - Convulsion [Recovered/Resolved]
  - Convulsion [Recovered/Resolved]
  - Convulsion [Recovered/Resolved]
  - Thyroid disorder [Not Recovered/Not Resolved]
  - Arthralgia [Not Recovered/Not Resolved]
  - Middle insomnia [Not Recovered/Not Resolved]
  - Screaming [Not Recovered/Not Resolved]
  - Mobility decreased [Not Recovered/Not Resolved]
